FAERS Safety Report 25932390 (Version 1)
Quarter: 2025Q4

REPORT INFORMATION
  Report Type: Spontaneous
  Country: EU (occurrence: EU)
  Receive Date: 20251016
  Receipt Date: 20251016
  Transmission Date: 20260117
  Serious: Yes (Other)
  Sender: ALKEM
  Company Number: EU-ALKEM LABORATORIES LIMITED-GR-ALKEM-2025-10961

PATIENT
  Age: 36 Year
  Sex: Female

DRUGS (10)
  1. MYCOPHENOLATE MOFETIL [Suspect]
     Active Substance: MYCOPHENOLATE MOFETIL
     Indication: Chondritis
     Dosage: 2 GRAM, QD
     Route: 065
  2. METHYLPREDNISOLONE [Suspect]
     Active Substance: METHYLPREDNISOLONE
     Indication: Chondritis
     Dosage: 1 GRAM (3 PULSES)
     Route: 042
  3. CYCLOPHOSPHAMIDE [Suspect]
     Active Substance: CYCLOPHOSPHAMIDE
     Indication: Chondritis
     Dosage: 1 GRAM (6 MONTHLY IV PULSES)
     Route: 042
  4. METHOTREXATE [Suspect]
     Active Substance: METHOTREXATE
     Indication: Chondritis
     Dosage: UNK
     Route: 065
  5. PREDNISOLONE [Suspect]
     Active Substance: PREDNISOLONE
     Indication: Polychondritis
     Dosage: 1 MILLIGRAM/KILOGRAM, QD (TOTAL DOSE 60 MG PER DAY)
     Route: 048
  6. PREDNISOLONE [Suspect]
     Active Substance: PREDNISOLONE
     Indication: Palmoplantar pustulosis
     Dosage: UNK (REDUCTION DOSE)
     Route: 065
  7. PREDNISOLONE [Suspect]
     Active Substance: PREDNISOLONE
     Dosage: 15 MILLIGRAM
     Route: 048
  8. TOCILIZUMAB [Suspect]
     Active Substance: TOCILIZUMAB
     Indication: Episcleritis
     Dosage: 162 MILLIGRAM, ONCE WEEKLY
     Route: 058
  9. TOCILIZUMAB [Suspect]
     Active Substance: TOCILIZUMAB
     Indication: Uveitis
  10. SALICYLIC ACID [Concomitant]
     Active Substance: SALICYLIC ACID
     Indication: Palmoplantar pustulosis
     Dosage: UNK
     Route: 065

REACTIONS (3)
  - Uveitis [Recovering/Resolving]
  - Episcleritis [Recovering/Resolving]
  - Upper respiratory tract infection [Unknown]
